FAERS Safety Report 4876262-3 (Version None)
Quarter: 2005Q4

REPORT INFORMATION
  Report Type: 
  Country: None (occurrence: None)
  Receive Date: 20051206
  Receipt Date: 20051011
  Transmission Date: 20060501
  Serious: No
  Sender: FDA-Public Use
  Company Number: USA0510110628

PATIENT
  Age: 69 Year
  Sex: Male
  Weight: 99 kg

DRUGS (12)
  1. CYMBALTA [Suspect]
     Indication: NEUROPATHY PERIPHERAL
     Dates: start: 20051005
  2. HUMULIN (INSULIN HUMAN) [Concomitant]
  3. CLONIDINE [Concomitant]
  4. LANTUS [Concomitant]
  5. COREG [Concomitant]
  6. COZAAR [Concomitant]
  7. ALTACE [Concomitant]
  8. MINOXIDIL [Concomitant]
  9. DOXAZOSIN [Concomitant]
  10. LIPITOR [Concomitant]
  11. LORAZEPAM [Concomitant]
  12. NEURONTIN [Concomitant]

REACTIONS (5)
  - ANOREXIA [None]
  - BLOOD PRESSURE INCREASED [None]
  - PAROSMIA [None]
  - SOMNOLENCE [None]
  - TREMOR [None]
